FAERS Safety Report 6295508-0 (Version None)
Quarter: 2009Q3

REPORT INFORMATION
  Report Type: 
  Country: None (occurrence: None)
  Receive Date: 20090731
  Receipt Date: 20090716
  Transmission Date: 20100115
  Serious: Yes (Death)
  Sender: FDA-Public Use
  Company Number: POMP-1000666

PATIENT
  Age: 53 Year
  Sex: Female

DRUGS (1)
  1. FABRAZYME [Suspect]
     Indication: FABRY'S DISEASE
     Dates: end: 20090520

REACTIONS (5)
  - ASPIRATION [None]
  - GENERAL PHYSICAL HEALTH DETERIORATION [None]
  - MECHANICAL VENTILATION [None]
  - PNEUMONIA [None]
  - POST PROCEDURAL COMPLICATION [None]
